FAERS Safety Report 26213497 (Version 1)
Quarter: 2025Q4

REPORT INFORMATION
  Report Type: Spontaneous
  Country: EU (occurrence: EU)
  Receive Date: 20251230
  Receipt Date: 20251230
  Transmission Date: 20260118
  Serious: Yes (Other)
  Sender: WAYLIS THERAPEUTICS
  Company Number: EU-WAYLIS-2025-FR-000146

PATIENT
  Age: 62 Year
  Sex: Female

DRUGS (4)
  1. RABEPRAZOLE SODIUM [Suspect]
     Active Substance: RABEPRAZOLE SODIUM
     Indication: Hiatus hernia
     Dosage: 10.0 MILLIGRAM(S) (10 MILLIGRAM(S), 1 IN 1 DAY)
     Route: 048
  2. OCREVUS [Suspect]
     Active Substance: OCRELIZUMAB
     Dosage: (600 MILLIGRAM(S), 1 IN 1 CYCLICAL)
     Route: 042
     Dates: start: 202210
  3. TROSPIUM CHLORIDE [Suspect]
     Active Substance: TROSPIUM CHLORIDE
     Dosage: 40.0 MILLIGRAM(S) (40 MILLIGRAM(S), 1 IN 1 DAY)
     Route: 048
  4. ENTECAVIR [Suspect]
     Active Substance: ENTECAVIR
     Dosage: 0.5 MILLIGRAM(S) (0.5 MILLIGRAM(S), 1 IN 1 DAY)
     Route: 048
     Dates: start: 20240119

REACTIONS (1)
  - Colitis [Unknown]

NARRATIVE: CASE EVENT DATE: 20250701
